FAERS Safety Report 10905631 (Version 1)
Quarter: 2015Q1

REPORT INFORMATION
  Report Type: Spontaneous
  Country: US (occurrence: None)
  Receive Date: 20150309
  Receipt Date: 20150309
  Transmission Date: 20150721
  Serious: Yes (Life-Threatening, Disabling, Other)
  Sender: FDA-Public Use
  Company Number: None

PATIENT
  Age: 57 Year
  Sex: Female
  Weight: 68.04 kg

DRUGS (8)
  1. XLEXDTIL [Concomitant]
  2. LYRICA [Concomitant]
     Active Substance: PREGABALIN
  3. PROLOSEC [Concomitant]
  4. HARVONI [Suspect]
     Active Substance: LEDIPASVIR\SOFOSBUVIR
  5. ZANAFLEX [Concomitant]
     Active Substance: TIZANIDINE HYDROCHLORIDE
  6. EQUATE [Concomitant]
     Active Substance: UNSPECIFIED INGREDIENT
  7. LEXPRO [Concomitant]
  8. HYTROCLORITHY TRAMDOL [Concomitant]

REACTIONS (12)
  - Pain [None]
  - Abasia [None]
  - Diarrhoea [None]
  - Tremor [None]
  - Fall [None]
  - Malaise [None]
  - Muscular weakness [None]
  - Mental disorder [None]
  - Nervous system disorder [None]
  - Vomiting [None]
  - Abnormal behaviour [None]
  - Impaired driving ability [None]

NARRATIVE: CASE EVENT DATE: 20150307
